FAERS Safety Report 17039000 (Version 1)
Quarter: 2019Q4

REPORT INFORMATION
  Report Type: Spontaneous
  Country: GB (occurrence: GB)
  Receive Date: 20191115
  Receipt Date: 20191115
  Transmission Date: 20200122
  Serious: Yes (Other)
  Sender: FDA-Public Use
  Company Number: GB-NAPPMUNDI-GBR-2019-0072508

PATIENT
  Age: 70 Year
  Sex: Female
  Weight: 55 kg

DRUGS (19)
  1. MOMETASONE [Concomitant]
     Active Substance: MOMETASONE
     Dosage: 2 DF, DAILY (TWO SPRAYS DAILY)
     Dates: start: 20161222
  2. MST CONTINUS [Suspect]
     Active Substance: MORPHINE SULFATE
     Indication: PRODUCT USED FOR UNKNOWN INDICATION
     Dosage: UNK
     Route: 065
     Dates: start: 20160913
  3. LACTULOSE. [Concomitant]
     Active Substance: LACTULOSE
     Dosage: 30 ML, DAILY
     Dates: start: 20161121
  4. OMEPRAZOLE. [Concomitant]
     Active Substance: OMEPRAZOLE
     Dosage: 1 DF, DAILY
     Dates: start: 20150630
  5. CROTAMITON [Concomitant]
     Active Substance: CROTAMITON
     Dosage: UNK, DAILY (USE AS DIRECTED)
     Dates: start: 20170908, end: 20170909
  6. DEXAMETHASONE. [Concomitant]
     Active Substance: DEXAMETHASONE
     Dosage: 1 DF, DAILY
     Dates: start: 20170131, end: 20171031
  7. GABAPENTIN. [Concomitant]
     Active Substance: GABAPENTIN
     Dosage: 2 DF, DAILY
     Dates: start: 20160422
  8. PARACETAMOL [Concomitant]
     Active Substance: ACETAMINOPHEN
     Dosage: UNK, DAILY (1 OR 2 4 TIMES/DAY)
     Dates: start: 20160422
  9. CLOBETASONE BUTYRATE [Concomitant]
     Active Substance: CLOBETASONE BUTYRATE
     Dosage: UNK, DAILY (APPLY 1-2 TIMES DAILY)
     Dates: start: 20170920, end: 20171002
  10. ADCAL                              /00056901/ [Concomitant]
     Active Substance: CARBAZOCHROME
     Dosage: 2 DF, DAILY
     Dates: start: 20170310, end: 20170818
  11. EPADERM [Concomitant]
     Active Substance: MINERAL OIL\PETROLATUM\WAX, EMULSIFYING
     Dosage: UNK (USE AS DIRECTED)
     Dates: start: 20171005
  12. PERMETHRIN. [Concomitant]
     Active Substance: PERMETHRIN
     Dosage: UNK, DAILY (USE AS DIRECTED)
     Dates: start: 20170908, end: 20170909
  13. ATORVASTATIN [Concomitant]
     Active Substance: ATORVASTATIN
     Dosage: 1 DF, DAILY
     Dates: start: 20150630
  14. LANSOPRAZOLE. [Concomitant]
     Active Substance: LANSOPRAZOLE
     Dosage: 1 DF, DAILY
     Dates: start: 20170131, end: 20170915
  15. LOPERAMIDE [Concomitant]
     Active Substance: LOPERAMIDE
     Dosage: UNK (SE AS DIRECTED)
     Dates: start: 20170908, end: 20170928
  16. BETAMETHASONE W/CALCIPOTRIOL [Concomitant]
     Active Substance: BETAMETHASONE DIPROPIONATE\CALCIPOTRIENE HYDRATE
     Dosage: 1 DF, DAILY
     Dates: start: 20171005
  17. CETIRIZINE [Concomitant]
     Active Substance: CETIRIZINE HYDROCHLORIDE
     Dosage: 1 DF, DAILY
     Dates: start: 20170908, end: 20171008
  18. MORPHINE SULFATE. [Concomitant]
     Active Substance: MORPHINE SULFATE
     Dosage: 5 ML, PRN (4 TIMES DAILY AS NECESSARY)
     Dates: start: 20170721
  19. VENTOLIN [Concomitant]
     Active Substance: ALBUTEROL SULFATE
     Dosage: 2 DF, PRN
     Route: 055
     Dates: start: 20150630

REACTIONS (3)
  - Joint swelling [Recovered/Resolved]
  - Swelling [Unknown]
  - Malaise [Unknown]

NARRATIVE: CASE EVENT DATE: 20171031
